FAERS Safety Report 9775377 (Version 1)
Quarter: 2013Q4

REPORT INFORMATION
  Report Type: Spontaneous
  Country: US (occurrence: US)
  Receive Date: 20131220
  Receipt Date: 20131220
  Transmission Date: 20140711
  Serious: No
  Sender: FDA-Public Use
  Company Number: US-GALDERMA-US13003237

PATIENT
  Age: 48 Year
  Sex: Female

DRUGS (5)
  1. MIRVASO (BRIMONIDINE) TOPICAL GEL, 0.33% [Suspect]
     Indication: ROSACEA
     Dosage: 0.33%
     Route: 061
     Dates: start: 20131011, end: 20131014
  2. SPIRONOLACTONE [Suspect]
     Indication: ACNE
     Dosage: 100MG
     Route: 048
     Dates: start: 20131011
  3. AQUANIL CLEANSER [Concomitant]
     Indication: THERAPEUTIC SKIN CARE TOPICAL
     Route: 061
  4. CERAVE MOISTURIZER [Concomitant]
     Indication: DRY SKIN PROPHYLAXIS
     Route: 061
  5. ACZONE (DAPSONE) GEL 5% [Concomitant]
     Indication: ACNE
     Dosage: 5%
     Route: 061
     Dates: start: 20130815

REACTIONS (6)
  - Condition aggravated [Recovering/Resolving]
  - Hyperhidrosis [Recovering/Resolving]
  - Flushing [Recovering/Resolving]
  - Skin burning sensation [Recovering/Resolving]
  - Feeling hot [Recovering/Resolving]
  - Feeling hot [Recovering/Resolving]
